FAERS Safety Report 14006782 (Version 1)
Quarter: 2017Q3

REPORT INFORMATION
  Report Type: Spontaneous
  Country: US (occurrence: US)
  Receive Date: 20170925
  Receipt Date: 20170925
  Transmission Date: 20171128
  Serious: No
  Sender: FDA-Public Use
  Company Number: US-PFIZER INC-2017408648

PATIENT
  Age: 27 Year
  Sex: Female
  Weight: 69 kg

DRUGS (6)
  1. ANCEF [Concomitant]
     Active Substance: CEFAZOLIN SODIUM
     Dosage: 2 G,ONE DOSE
     Route: 042
  2. BUPIVACAINE HCL [Suspect]
     Active Substance: BUPIVACAINE HYDROCHLORIDE
     Indication: CAESAREAN SECTION
     Dosage: 7.5MG BUPIVACAINE HCL AND 82.5MG DEXTROSE PER ML
     Route: 037
     Dates: start: 20170918, end: 20170918
  3. FENTANYL. [Concomitant]
     Active Substance: FENTANYL
     Dosage: 15 UG, UNK
  4. DURAMORPH [Concomitant]
     Active Substance: MORPHINE SULFATE
     Dosage: 0.2 MG, UNK
  5. LIDOCAINE. [Concomitant]
     Active Substance: LIDOCAINE
     Dosage: UNK
  6. PITOCIN [Concomitant]
     Active Substance: OXYTOCIN
     Dosage: UNK

REACTIONS (1)
  - Drug ineffective [Unknown]

NARRATIVE: CASE EVENT DATE: 20170918
